FAERS Safety Report 20054765 (Version 1)
Quarter: 2021Q4

REPORT INFORMATION
  Report Type: Spontaneous
  Country: US (occurrence: None)
  Receive Date: 20211110
  Receipt Date: 20211110
  Transmission Date: 20220303
  Serious: Yes (Death, Hospitalization)
  Sender: FDA-Public Use
  Company Number: None

PATIENT
  Age: 83 Year
  Sex: Male
  Weight: 59.9 kg

DRUGS (11)
  1. GEMCITABINE HYDROCHLORIDE [Suspect]
     Active Substance: GEMCITABINE HYDROCHLORIDE
     Dates: end: 20211018
  2. PACLITAXEL [Suspect]
     Active Substance: PACLITAXEL
     Dates: end: 20211018
  3. 0.9% SODIUM CHLORIDE SOLUTION [Concomitant]
  4. AMLODIPINE [Concomitant]
     Active Substance: AMLODIPINE BESYLATE
  5. CIPROFLOXACIN [Concomitant]
     Active Substance: CIPROFLOXACIN
  6. FINASTERIDE [Concomitant]
     Active Substance: FINASTERIDE
  7. HYDROCHLOROTHIAZIDE [Concomitant]
     Active Substance: HYDROCHLOROTHIAZIDE
  8. ACETAMINOPHEN\HYDROCODONE [Concomitant]
     Active Substance: ACETAMINOPHEN\HYDROCODONE
  9. LISINOPRIL [Concomitant]
     Active Substance: LISINOPRIL
  10. POLYETHYLENE GLYCOL [Concomitant]
     Active Substance: POLYETHYLENE GLYCOL
  11. VANCOMYCIN [Concomitant]
     Active Substance: VANCOMYCIN

REACTIONS (7)
  - Anaemia [None]
  - Tachycardia [None]
  - Fatigue [None]
  - Malaise [None]
  - Sepsis [None]
  - Laboratory test abnormal [None]
  - Atrial fibrillation [None]

NARRATIVE: CASE EVENT DATE: 20211029
